FAERS Safety Report 4956333-3 (Version None)
Quarter: 2006Q1

REPORT INFORMATION
  Report Type: 
  Country: None (occurrence: None)
  Receive Date: 20060323
  Receipt Date: 20060317
  Transmission Date: 20060701
  Serious: Yes (Hospitalization)
  Sender: FDA-Public Use
  Company Number: 2006-01034

PATIENT
  Age: 25 Year
  Sex: Female

DRUGS (1)
  1. RECLIPSEN (WATSON LABORATORIES) (ETHINYL ESTRADIOL 0.03MG, DESOGESTREL [Suspect]
     Indication: ORAL CONTRACEPTION
     Dosage: ORAL
     Route: 048
     Dates: start: 19980101, end: 19980101

REACTIONS (3)
  - ASCITES [None]
  - DISEASE RECURRENCE [None]
  - DRUG EXPOSURE BEFORE PREGNANCY [None]
